FAERS Safety Report 6229335-7 (Version None)
Quarter: 2009Q2

REPORT INFORMATION
  Report Type: 
  Country: None (occurrence: None)
  Receive Date: 20090615
  Receipt Date: 20090610
  Transmission Date: 20091009
  Serious: No
  Sender: FDA-Public Use
  Company Number: US-B.I. PHARMACEUTICALS,INC./RIDGEFIELD-2009-BP-07187BP

PATIENT
  Sex: Female

DRUGS (4)
  1. SPIRIVA [Suspect]
     Indication: CHRONIC OBSTRUCTIVE PULMONARY DISEASE
     Dosage: 18MCG
     Route: 055
     Dates: start: 20090515
  2. SPIRIVA [Suspect]
     Indication: ASTHMA
  3. COZAAR [Concomitant]
     Indication: HYPERTENSION
     Route: 048
  4. FEMARA [Concomitant]
     Indication: BREAST CANCER
     Route: 048

REACTIONS (2)
  - DYSPHONIA [None]
  - THROAT IRRITATION [None]
